FAERS Safety Report 9361782 (Version 1)
Quarter: 2013Q2

REPORT INFORMATION
  Report Type: Spontaneous
  Country: KZ (occurrence: KZ)
  Receive Date: 20130621
  Receipt Date: 20130621
  Transmission Date: 20140414
  Serious: Yes (Death, Hospitalization)
  Sender: FDA-Public Use
  Company Number: PHHY2013KZ062337

PATIENT
  Age: 5 Year
  Sex: Female

DRUGS (3)
  1. VALPROIC ACID [Suspect]
     Indication: EPILEPSY
  2. LEVETIRACETAM [Suspect]
  3. L-CARNITINA [Suspect]

REACTIONS (3)
  - Brain oedema [Fatal]
  - Multi-organ disorder [Fatal]
  - Drug ineffective [Unknown]
